FAERS Safety Report 23738041 (Version 1)
Quarter: 2024Q2

REPORT INFORMATION
  Report Type: Report from Study
  Country: CR (occurrence: CR)
  Receive Date: 20240412
  Receipt Date: 20240412
  Transmission Date: 20240716
  Serious: Yes (Life-Threatening, Hospitalization, Other)
  Sender: FDA-Public Use
  Company Number: CR-BIOGEN-2024BI01259696

PATIENT
  Age: 45 Year
  Sex: Female
  Weight: 57 kg

DRUGS (11)
  1. AVONEX [Suspect]
     Active Substance: INTERFERON BETA-1A
     Indication: Relapsing multiple sclerosis
     Route: 050
     Dates: start: 20210318
  2. AVONEX [Suspect]
     Active Substance: INTERFERON BETA-1A
  3. AVONEX [Suspect]
     Active Substance: INTERFERON BETA-1A
  4. AVONEX [Suspect]
     Active Substance: INTERFERON BETA-1A
  5. PREDNISOLONE [Suspect]
     Active Substance: PREDNISOLONE
     Indication: Noninfective encephalitis
     Dosage: 8 PILLS
     Route: 050
  6. PREDNISOLONE [Suspect]
     Active Substance: PREDNISOLONE
     Route: 050
  7. HYDROXYUREA [Concomitant]
     Active Substance: HYDROXYUREA
     Indication: Thrombocytosis
     Dosage: MONDAY TO FRIDAY
     Route: 050
     Dates: start: 202103
  8. HYDROXYUREA [Concomitant]
     Active Substance: HYDROXYUREA
     Dosage: SATURDAY AND SUNDAY
     Route: 050
     Dates: start: 202103
  9. GABAPENTIN [Concomitant]
     Active Substance: GABAPENTIN
     Indication: Product used for unknown indication
     Route: 050
     Dates: start: 202103
  10. ASPIRIN [Concomitant]
     Active Substance: ASPIRIN
     Indication: Thrombocytosis
     Route: 050
     Dates: start: 202103
  11. FLUOXETINE [Concomitant]
     Active Substance: FLUOXETINE HYDROCHLORIDE
     Indication: Depression
     Dosage: 20 OR 40 MG PRN
     Route: 050
     Dates: start: 202103

REACTIONS (3)
  - Drug hypersensitivity [Recovered/Resolved]
  - Noninfective encephalitis [Unknown]
  - Muscle atrophy [Not Recovered/Not Resolved]

NARRATIVE: CASE EVENT DATE: 20210501
